FAERS Safety Report 13632610 (Version 1)
Quarter: 2017Q2

REPORT INFORMATION
  Report Type: Spontaneous
  Country: US (occurrence: US)
  Receive Date: 20170531
  Receipt Date: 20170531
  Transmission Date: 20170830
  Serious: No
  Sender: FDA-Public Use
  Company Number: US-ASTELLAS-1468352

PATIENT
  Sex: Female

DRUGS (4)
  1. TARCEVA [Suspect]
     Active Substance: ERLOTINIB HYDROCHLORIDE
     Indication: CHOLANGIOCARCINOMA
     Dosage: FREQUENCY: DAILY
     Route: 048
     Dates: start: 20140701
  2. ONDANSETRON [Concomitant]
     Active Substance: ONDANSETRON
  3. XARELTO [Concomitant]
     Active Substance: RIVAROXABAN
  4. RESTORIL (UNITED STATES) [Concomitant]

REACTIONS (2)
  - Acne [Unknown]
  - Eczema [Unknown]
